FAERS Safety Report 8483058-2 (Version None)
Quarter: 2012Q3

REPORT INFORMATION
  Report Type: 
  Country: None (occurrence: None)
  Receive Date: 20120702
  Receipt Date: 20120618
  Transmission Date: 20120928
  Serious: No
  Sender: FDA-Public Use
  Company Number: US-ASTRAZENECA-2012SE40846

PATIENT
  Age: 49 Year
  Sex: Male
  Weight: 62.6 kg

DRUGS (11)
  1. SEROQUEL [Suspect]
     Indication: DEPRESSION
     Route: 048
     Dates: start: 20111101
  2. CLONAZEPAM [Concomitant]
  3. CARBAMAZEPINE [Concomitant]
  4. SEROQUEL [Suspect]
     Dosage: CHEW HALF OF THE 25 MG TABLET
     Route: 048
  5. BECLOMETHASONE DIPROPIONATE [Concomitant]
  6. SEROQUEL [Suspect]
     Route: 048
     Dates: start: 20111101
  7. GABAPENTIN [Concomitant]
  8. QVAR 40 [Concomitant]
  9. MIRTAZAPINE [Concomitant]
  10. SEROQUEL [Suspect]
     Route: 048
     Dates: start: 20120101
  11. ATROVENT [Concomitant]

REACTIONS (5)
  - ANXIETY [None]
  - NEPHROLITHIASIS [None]
  - OFF LABEL USE [None]
  - BLOOD PRESSURE INCREASED [None]
  - SOMNOLENCE [None]
